FAERS Safety Report 19703079 (Version 2)
Quarter: 2021Q3

REPORT INFORMATION
  Report Type: Spontaneous
  Country: AT (occurrence: AT)
  Receive Date: 20210816
  Receipt Date: 20210907
  Transmission Date: 20211014
  Serious: Yes (Other)
  Sender: FDA-Public Use
  Company Number: AT-BAUSCH-BL-2021-027525

PATIENT
  Age: 74 Year
  Sex: Male

DRUGS (6)
  1. DEXAMETHASONE. [Suspect]
     Active Substance: DEXAMETHASONE
     Indication: LIGHT CHAIN DISEASE
     Dosage: DISCONTINUED AFTER 5 CYCLES (BORTEZOMIB/DEXAMETHASONE)
     Route: 065
     Dates: start: 201604, end: 201607
  2. ZOLEDRONIC ACID [Concomitant]
     Active Substance: ZOLEDRONIC ACID
     Dosage: RESTARTED
     Dates: start: 2015
  3. DEXAMETHASONE. [Suspect]
     Active Substance: DEXAMETHASONE
     Dosage: DISCONTINUED AFTER 12 CYCLES (LENALIDOMIDE/DEXAMETHASONE)
     Route: 065
     Dates: end: 201707
  4. BORTEZOMIB. [Suspect]
     Active Substance: BORTEZOMIB
     Indication: LIGHT CHAIN DISEASE
     Dosage: DISCONTINUED AFTER 5 CYCLES
     Route: 065
     Dates: start: 201604, end: 201607
  5. ZOLEDRONIC ACID [Concomitant]
     Active Substance: ZOLEDRONIC ACID
     Indication: PRODUCT USED FOR UNKNOWN INDICATION
     Dates: start: 200609
  6. LENALIDOMIDE [Suspect]
     Active Substance: LENALIDOMIDE
     Indication: LIGHT CHAIN DISEASE
     Dosage: 12 CYCLES
     Route: 065
     Dates: end: 201706

REACTIONS (2)
  - Polyneuropathy [Unknown]
  - Adverse event [Unknown]

NARRATIVE: CASE EVENT DATE: 2016
